FAERS Safety Report 9539068 (Version 1)
Quarter: 2013Q2

REPORT INFORMATION
  Report Type: Spontaneous
  Country: US (occurrence: None)
  Receive Date: 20130521
  Receipt Date: 20130521
  Transmission Date: 20140414
  Serious: Yes (Other)
  Sender: FDA-Public Use
  Company Number: 10000042921

PATIENT
  Age: 65 Year
  Sex: Male

DRUGS (8)
  1. TUDORZA PRESSAIR [Suspect]
     Indication: CHRONIC OBSTRUCTIVE PULMONARY DISEASE
     Dosage: 400 MCG BID (400 MCG, 2 IN 1 D), RESPIRATORY (INHALATION)?
     Route: 055
     Dates: start: 201302
  2. FINASTERIDE (FINASTERIDE) (FINASTERIDE) [Concomitant]
  3. MONTELUKAST (MONTELUKAST) (MONTELUKAST) [Concomitant]
  4. MOBIC (MELOXICAM) (MELOXICAM) [Concomitant]
  5. RANITIDINE (RANITIDINE) (RANITIDINE) [Concomitant]
  6. CITALOPRAM (CITALOPRAM HYDROBROMIDE) (CITALOPRAM HYDROBROMIDE0 [Concomitant]
  7. AMLODIPINE BESYLATE (AMLODIPINE BESILATE) (AMLODIPINE BESILATE) [Concomitant]
  8. OXYGEN (OXYGEN) (OXYGEN) [Concomitant]

REACTIONS (2)
  - Vision blurred [None]
  - Dyspnoea [None]
